FAERS Safety Report 7916041 (Version 3)
Quarter: 2012Q4

REPORT INFORMATION
  Report Type: 
  Country: US (occurrence: US)
  Receive Date: 20110427
  Receipt Date: 20120926
  Transmission Date: 20130627
  Serious: Yes (Hospitalization)
  Sender: FDA-Public Use
  Company Number: US-BAYER-2011-035609

PATIENT
  Age: 24 Year
  Sex: Female
  Weight: 72.56 kg

DRUGS (3)
  1. YAZ [Suspect]
     Indication: CONTRACEPTION
     Dosage: UNK
     Dates: start: 200606, end: 200701
  2. ADVIL [Concomitant]
     Indication: HEADACHE
     Dosage: UNK UNK, PRN
     Route: 048
     Dates: start: 2000, end: 2006
  3. ADVIL [Concomitant]
     Indication: PREMENSTRUAL SYNDROME

REACTIONS (18)
  - Pulmonary embolism [Recovered/Resolved]
  - Deep vein thrombosis [Recovered/Resolved]
  - Cholecystectomy [None]
  - Cholecystitis chronic [None]
  - Biliary dyskinesia [None]
  - Appendicectomy [None]
  - Appendicitis [None]
  - Pain [Recovered/Resolved]
  - Injury [Recovered/Resolved]
  - Chest pain [Recovered/Resolved]
  - Gastrooesophageal reflux disease [None]
  - Fear [None]
  - Anxiety [None]
  - General physical health deterioration [None]
  - Emotional distress [None]
  - Pelvic venous thrombosis [None]
  - Vena cava thrombosis [None]
  - Appendicitis perforated [None]
